FAERS Safety Report 11128010 (Version 1)
Quarter: 2015Q2

REPORT INFORMATION
  Report Type: Spontaneous
  Country: US (occurrence: None)
  Receive Date: 20150520
  Receipt Date: 20150520
  Transmission Date: 20150821
  Serious: No
  Sender: FDA-Public Use
  Company Number: None

PATIENT
  Age: 38 Year
  Sex: Female
  Weight: 71.22 kg

DRUGS (5)
  1. PROTEIN SUPPLEMENTS [Concomitant]
     Active Substance: PROTEIN
  2. MIRENA [Suspect]
     Active Substance: LEVONORGESTREL
     Dates: start: 20150304, end: 20150519
  3. MULTI-VITAMIN [Concomitant]
     Active Substance: .ALPHA.-TOCOPHEROL ACETATE, DL-\ASCORBIC ACID\CYANOCOBALAMIN\FLUORIDE ION\FOLIC ACID\NIACIN\PYRIDOXINE\RIBOFLAVIN\THIAMINE\VITAMIN A\VITAMIN D
  4. VALERIAN ROOT [Concomitant]
     Active Substance: VALERIAN
  5. THEANINE [Concomitant]

REACTIONS (1)
  - Device expulsion [None]

NARRATIVE: CASE EVENT DATE: 20150519
